FAERS Safety Report 7313362-2 (Version None)
Quarter: 2011Q1

REPORT INFORMATION
  Report Type: 
  Country: None (occurrence: None)
  Receive Date: 20110217
  Receipt Date: 20110217
  Transmission Date: 20110831
  Serious: Yes (Life-Threatening, Other)
  Sender: FDA-Public Use
  Company Number: None

PATIENT
  Age: 63 Year
  Sex: Female
  Weight: 106.5953 kg

DRUGS (2)
  1. DEXILANT [Suspect]
     Indication: GASTRITIS
     Dosage: 1 CAPSULE 1/DAY MORNING PO
     Route: 048
     Dates: start: 20110104, end: 20110125
  2. DEXILANT [Suspect]
     Indication: OESOPHAGITIS
     Dosage: 1 CAPSULE 1/DAY MORNING PO
     Route: 048
     Dates: start: 20110104, end: 20110125

REACTIONS (5)
  - RASH [None]
  - DIARRHOEA [None]
  - SWOLLEN TONGUE [None]
  - THROAT TIGHTNESS [None]
  - GLOSSODYNIA [None]
